FAERS Safety Report 20086104 (Version 1)
Quarter: 2021Q4

REPORT INFORMATION
  Report Type: Spontaneous
  Country: US (occurrence: None)
  Receive Date: 20211117
  Receipt Date: 20211117
  Transmission Date: 20220303
  Serious: No
  Sender: FDA-Public Use
  Company Number: None

PATIENT

DRUGS (2)
  1. REGLAN [Suspect]
     Active Substance: METOCLOPRAMIDE HYDROCHLORIDE
  2. REGLAN [Suspect]
     Active Substance: METOCLOPRAMIDE HYDROCHLORIDE

REACTIONS (2)
  - Screaming [None]
  - Incorrect dose administered [None]
